FAERS Safety Report 14402313 (Version 1)
Quarter: 2018Q1

REPORT INFORMATION
  Report Type: Spontaneous
  Country: US (occurrence: US)
  Receive Date: 20180116
  Receipt Date: 20180116
  Transmission Date: 20180509
  Serious: No
  Sender: FDA-Public Use
  Company Number: None

PATIENT
  Sex: Male
  Weight: 126 kg

DRUGS (3)
  1. TUMS [Concomitant]
     Active Substance: CALCIUM CARBONATE
  2. OTC HEART BURN PILLS [Concomitant]
  3. TAMIFLU [Suspect]
     Active Substance: OSELTAMIVIR PHOSPHATE
     Indication: INFLUENZA
     Route: 048
     Dates: start: 20150312, end: 20150316

REACTIONS (6)
  - Therapy cessation [None]
  - Hallucinations, mixed [None]
  - Depression [None]
  - Abnormal behaviour [None]
  - Suicidal ideation [None]
  - Sleep disorder [None]

NARRATIVE: CASE EVENT DATE: 20150312
